FAERS Safety Report 9722896 (Version 2)
Quarter: 2014Q2

REPORT INFORMATION
  Report Type: Report from Study
  Country: FR (occurrence: FR)
  Receive Date: 20131202
  Receipt Date: 20140409
  Transmission Date: 20141212
  Serious: Yes (Hospitalization)
  Sender: FDA-Public Use
  Company Number: FR-ASTELLAS-2013EU010328

PATIENT
  Sex: Male

DRUGS (10)
  1. TACROLIMUS MR4 CAPSULES [Suspect]
     Indication: IMMUNOSUPPRESSION
     Dosage: 5 MG, UNKNOWN/D
     Route: 065
     Dates: start: 20130810
  2. TAHOR [Concomitant]
     Indication: HYPERCHOLESTEROLAEMIA
     Dosage: UNK
     Route: 065
     Dates: start: 20130720
  3. CELLCEPT                           /01275102/ [Concomitant]
     Indication: IMMUNOSUPPRESSION
     Dosage: UNK
     Route: 065
     Dates: start: 20130720
  4. CORTANCYL [Concomitant]
     Indication: PROPHYLAXIS AGAINST TRANSPLANT REJECTION
     Dosage: UNK
     Route: 065
     Dates: start: 20130720
  5. INEXIUM                            /01479302/ [Concomitant]
     Indication: GASTROOESOPHAGEAL REFLUX DISEASE
     Dosage: UNK
     Route: 065
     Dates: start: 20130721
  6. SPECIAFOLDINE [Concomitant]
     Indication: ANAEMIA
     Dosage: UNK
     Route: 065
     Dates: start: 20130721
  7. NOVONORM [Concomitant]
     Indication: DIABETES MELLITUS
     Dosage: UNK
     Route: 065
     Dates: start: 20130726
  8. ADVAGRAF [Concomitant]
     Dosage: UNK
     Dates: start: 20130810
  9. TAZOCILLINE [Concomitant]
     Indication: ESCHERICHIA URINARY TRACT INFECTION
     Dosage: UNK
     Route: 065
  10. AMIKLIN                            /00391001/ [Concomitant]
     Indication: ESCHERICHIA URINARY TRACT INFECTION
     Dosage: UNK
     Route: 065

REACTIONS (5)
  - Overdose [Unknown]
  - Kidney transplant rejection [Recovered/Resolved]
  - Renal lymphocele [Recovered/Resolved]
  - Neutropenia [Recovered/Resolved]
  - Renal impairment [Recovered/Resolved]
